FAERS Safety Report 6715968-8 (Version None)
Quarter: 2010Q2

REPORT INFORMATION
  Report Type: 
  Country: None (occurrence: None)
  Receive Date: 20100506
  Receipt Date: 20100506
  Transmission Date: 20101027
  Serious: Yes (Life-Threatening)
  Sender: FDA-Public Use
  Company Number: None

PATIENT
  Age: 55 Year
  Sex: Male
  Weight: 167.8309 kg

DRUGS (2)
  1. METOLAZONE [Suspect]
     Indication: FLUID RETENTION
     Dosage: 5 MG. 1 X DAY
     Dates: start: 20091201, end: 20100401
  2. METFORMIN HYDROCHLORIDE [Suspect]
     Dosage: 1000, MG 1 X DAY

REACTIONS (9)
  - CARDIAC DISORDER [None]
  - FLUID RETENTION [None]
  - JOINT SWELLING [None]
  - MEMORY IMPAIRMENT [None]
  - MUSCULAR WEAKNESS [None]
  - MUSCULOSKELETAL PAIN [None]
  - PAIN IN EXTREMITY [None]
  - VISION BLURRED [None]
  - YELLOW SKIN [None]
